FAERS Safety Report 10672456 (Version 1)
Quarter: 2014Q4

REPORT INFORMATION
  Report Type: Spontaneous
  Country: US (occurrence: None)
  Receive Date: 20141222
  Receipt Date: 20141222
  Transmission Date: 20150529
  Serious: No
  Sender: FDA-Public Use
  Company Number: None

PATIENT
  Age: 47 Year
  Sex: Male
  Weight: 79.38 kg

DRUGS (1)
  1. FLUOXETINE [Suspect]
     Active Substance: FLUOXETINE\FLUOXETINE HYDROCHLORIDE
     Indication: DEPRESSION
     Dosage: 3 CAPSULES  ONCE DAILY  TAKEN BY MOUTH
     Route: 048
     Dates: start: 20141217, end: 20141219

REACTIONS (6)
  - Gastrointestinal pain [None]
  - Product formulation issue [None]
  - Product substitution issue [None]
  - Diarrhoea [None]
  - Product quality issue [None]
  - Dyspepsia [None]

NARRATIVE: CASE EVENT DATE: 20141217
